FAERS Safety Report 13961327 (Version 1)
Quarter: 2017Q3

REPORT INFORMATION
  Report Type: Spontaneous
  Country: US (occurrence: None)
  Receive Date: 20170912
  Receipt Date: 20170912
  Transmission Date: 20171128
  Serious: Yes (Disabling)
  Sender: FDA-Public Use
  Company Number: None

PATIENT
  Age: 65 Year
  Sex: Female
  Weight: 90.72 kg

DRUGS (7)
  1. HARVONI [Suspect]
     Active Substance: LEDIPASVIR\SOFOSBUVIR
     Indication: HEPATITIS C
     Route: 048
     Dates: start: 201404
  2. OMEGA 3 [Concomitant]
     Active Substance: OMEGA-3 FATTY ACIDS
  3. FORTEO [Concomitant]
     Active Substance: TERIPARATIDE
  4. LISINOPRIL. [Concomitant]
     Active Substance: LISINOPRIL
  5. VITAMIN D [Concomitant]
     Active Substance: CHOLECALCIFEROL
  6. MAGNESIUM [Concomitant]
     Active Substance: MAGNESIUM
  7. AMLODIPINE [Concomitant]
     Active Substance: AMLODIPINE BESYLATE

REACTIONS (10)
  - Fatigue [None]
  - Pruritus [None]
  - Upper limb fracture [None]
  - Osteoporosis [None]
  - Rash [None]
  - Dizziness [None]
  - Syncope [None]
  - Osteoarthritis [None]
  - Kidney infection [None]
  - Urinary tract infection [None]

NARRATIVE: CASE EVENT DATE: 201407
